FAERS Safety Report 18864755 (Version 1)
Quarter: 2021Q1

REPORT INFORMATION
  Report Type: Other
  Country: FR (occurrence: FR)
  Receive Date: 20210209
  Receipt Date: 20210209
  Transmission Date: 20210420
  Serious: Yes (Death, Other)
  Sender: FDA-Public Use
  Company Number: FR-APTAPHARMA INC.-2106528

PATIENT
  Age: 57 Year
  Sex: Male

DRUGS (5)
  1. COCAINE [Suspect]
     Active Substance: COCAINE
     Route: 065
  2. SILDENAFIL FOR ORAL SUSPENSION [Suspect]
     Active Substance: SILDENAFIL CITRATE
     Indication: PRODUCT USED FOR UNKNOWN INDICATION
     Route: 065
  3. BROMAZEPAM [Suspect]
     Active Substance: BROMAZEPAM
     Route: 065
  4. NEVIRAPINE. [Suspect]
     Active Substance: NEVIRAPINE
     Route: 065
  5. 4?METHYLPENTEDRONE [Suspect]
     Active Substance: 4-METHYLPENTEDRONE
     Route: 065

REACTIONS (9)
  - Cyanosis [Fatal]
  - Left ventricular dilatation [Fatal]
  - Hepatic steatosis [Fatal]
  - Hypoxia [Fatal]
  - Petechiae [Fatal]
  - Toxicity to various agents [Fatal]
  - Oedema [Fatal]
  - Congestive hepatopathy [Fatal]
  - Conjunctival hyperaemia [Fatal]
